FAERS Safety Report 7061304-X (Version None)
Quarter: 2010Q4

REPORT INFORMATION
  Report Type: 
  Country: None (occurrence: None)
  Receive Date: 20101026
  Receipt Date: 20101022
  Transmission Date: 20110411
  Serious: No
  Sender: FDA-Public Use
  Company Number: US-PFIZER INC-2010113618

PATIENT
  Sex: Male

DRUGS (7)
  1. PROCARDIA [Suspect]
     Dosage: 60 MG, DAILY
     Route: 048
     Dates: start: 20000701
  2. TOPROL-XL [Concomitant]
     Dosage: UNK
  3. LOVAZA [Concomitant]
     Dosage: UNK
  4. AMBIEN [Concomitant]
     Dosage: UNK
  5. VALSARTAN [Concomitant]
     Dosage: UNK
  6. SITAGLIPTIN PHOSPHATE [Concomitant]
     Dosage: UNK
  7. ZETIA [Concomitant]
     Dosage: UNK

REACTIONS (1)
  - DYSGEUSIA [None]
